FAERS Safety Report 24882949 (Version 1)
Quarter: 2025Q1

REPORT INFORMATION
  Report Type: Spontaneous
  Country: US (occurrence: None)
  Receive Date: 20250123
  Receipt Date: 20250123
  Transmission Date: 20250409
  Serious: No
  Sender: FDA-CTU
  Company Number: None

PATIENT
  Age: 59 Year
  Sex: Female

DRUGS (3)
  1. RINVOQ [Suspect]
     Active Substance: UPADACITINIB
     Indication: Psoriatic arthropathy
     Dosage: FREQUENCY : DAILY;?
     Route: 048
     Dates: start: 202309
  2. ARAVA [Suspect]
     Active Substance: LEFLUNOMIDE
  3. CELEBREX [Suspect]
     Active Substance: CELECOXIB

REACTIONS (5)
  - Influenza [None]
  - Acute kidney injury [None]
  - Sepsis [None]
  - Pneumonia [None]
  - Therapy interrupted [None]
